FAERS Safety Report 8971749 (Version 2)
Quarter: 2013Q1

REPORT INFORMATION
  Report Type: Spontaneous
  Country: US (occurrence: US)
  Receive Date: 20121217
  Receipt Date: 20130115
  Transmission Date: 20140127
  Serious: Yes (Death)
  Sender: FDA-Public Use
  Company Number: US-ASTELLAS-2012US012242

PATIENT
  Age: 39 Year
  Sex: Male

DRUGS (1)
  1. VESICARE [Suspect]
     Indication: MICTURITION URGENCY
     Dosage: 5 MG, UNKNOWN/D
     Route: 048
     Dates: end: 20120417

REACTIONS (2)
  - Death [Fatal]
  - Urinary retention [Unknown]
